FAERS Safety Report 9203150 (Version 1)
Quarter: 2013Q1

REPORT INFORMATION
  Report Type: Spontaneous
  Country: US (occurrence: None)
  Receive Date: 20130329
  Receipt Date: 20130329
  Transmission Date: 20140127
  Serious: Yes (Death)
  Sender: FDA-Public Use
  Company Number: UTC-030679

PATIENT
  Age: 41 Year
  Sex: Male
  Weight: 75.45 kg

DRUGS (1)
  1. TYVASO (6 MICROGRAM, AEROSOL FOR INHALATION) (TREPROSTINIL SODIUM) [Suspect]
     Indication: COR PULMONALE CHRONIC
     Dosage: 18-54  MICROGRAMS (4 IN 1 D), INHALATION
     Dates: start: 20120131

REACTIONS (1)
  - Death [None]
